FAERS Safety Report 6869841-5 (Version None)
Quarter: 2010Q3

REPORT INFORMATION
  Report Type: 
  Country: None (occurrence: None)
  Receive Date: 20100722
  Receipt Date: 20080827
  Transmission Date: 20110219
  Serious: Yes (Other)
  Sender: FDA-Public Use
  Company Number: US-PFIZER INC-2008071853

PATIENT
  Sex: Male
  Weight: 108.9 kg

DRUGS (1)
  1. CHANTIX [Suspect]
     Indication: SMOKING CESSATION THERAPY
     Dosage: 0.5MG QD EVERY DAY TDD:0.5MG
     Route: 048
     Dates: start: 20080801, end: 20080801

REACTIONS (2)
  - MALAISE [None]
  - MYOCARDIAL INFARCTION [None]
